FAERS Safety Report 17943964 (Version 1)
Quarter: 2020Q2

REPORT INFORMATION
  Report Type: Report from Study
  Country: None (occurrence: US)
  Receive Date: 20200625
  Receipt Date: 20200625
  Transmission Date: 20200714
  Serious: Yes (Hospitalization, Other)
  Sender: FDA-Public Use
  Company Number: US-BIOVITRUM-2020US2351

PATIENT
  Age: 36 Year
  Sex: Male

DRUGS (1)
  1. KINERET [Suspect]
     Active Substance: ANAKINRA
     Indication: CROHN^S DISEASE
     Route: 058
     Dates: start: 20190531

REACTIONS (4)
  - Malaise [Unknown]
  - Pyrexia [Unknown]
  - Vascular device infection [Unknown]
  - Off label use [Unknown]

NARRATIVE: CASE EVENT DATE: 20190531
